FAERS Safety Report 12507972 (Version 1)
Quarter: 2016Q2

REPORT INFORMATION
  Report Type: Spontaneous
  Country: US (occurrence: US)
  Receive Date: 20160629
  Receipt Date: 20160629
  Transmission Date: 20160815
  Serious: Yes (Death)
  Sender: FDA-Public Use
  Company Number: US-UCBSA-2016024142

PATIENT
  Age: 51 Year
  Sex: Male

DRUGS (1)
  1. CIMZIA [Suspect]
     Active Substance: CERTOLIZUMAB PEGOL
     Indication: CROHN^S DISEASE
     Dosage: 400 MG, EV 30 DAYS
     Route: 058
     Dates: start: 20150806, end: 20160511

REACTIONS (1)
  - Death [Fatal]

NARRATIVE: CASE EVENT DATE: 20160511
